FAERS Safety Report 7994307-9 (Version None)
Quarter: 2011Q4

REPORT INFORMATION
  Report Type: 
  Country: None (occurrence: None)
  Receive Date: 20111217
  Receipt Date: 20111217
  Transmission Date: 20120403
  Serious: Yes (Death)
  Sender: FDA-Public Use
  Company Number: None

PATIENT
  Sex: Male
  Weight: 84.1 kg

DRUGS (1)
  1. PEGASYS [Suspect]
     Indication: HEPATITIS
     Dosage: 180 MCG 1 Q WEEKLY SQ
     Route: 058
     Dates: start: 20110921, end: 20111209

REACTIONS (1)
  - SUDDEN DEATH [None]
